FAERS Safety Report 8935438 (Version 1)
Quarter: 2012Q4

REPORT INFORMATION
  Report Type: Spontaneous
  Country: US (occurrence: None)
  Receive Date: 20121128
  Receipt Date: 20121128
  Transmission Date: 20130627
  Serious: Yes (Hospitalization)
  Sender: FDA-Public Use
  Company Number: None

PATIENT
  Age: 60 Year
  Weight: 120 kg

DRUGS (18)
  1. DABIGATRAN [Suspect]
     Indication: ATRIAL FIBRILLATION
     Dosage: 75MG BID PO
     Route: 048
  2. DIGOXIN [Concomitant]
  3. SPIRONALACTONE [Concomitant]
  4. TRAMADOL [Concomitant]
  5. OMEPRAZOLE [Concomitant]
  6. OXISTAT [Concomitant]
  7. AMBIEN [Concomitant]
  8. ALLOPURINOL [Concomitant]
  9. TRIZVIIR [Concomitant]
  10. LASIX [Concomitant]
  11. TESTOSTERONE [Concomitant]
  12. JANUVIA [Concomitant]
  13. LANTUS [Concomitant]
  14. PRANDIN [Concomitant]
  15. DIOVAN [Concomitant]
  16. SIMVASTATIN [Concomitant]
  17. COREG [Concomitant]
  18. VIT D [Concomitant]

REACTIONS (5)
  - Anaemia [None]
  - Small intestinal haemorrhage [None]
  - Arteriovenous malformation [None]
  - Condition aggravated [None]
  - Heart rate increased [None]
